FAERS Safety Report 20866556 (Version 1)
Quarter: 2022Q2

REPORT INFORMATION
  Report Type: Spontaneous
  Country: US (occurrence: None)
  Receive Date: 20220523
  Receipt Date: 20220523
  Transmission Date: 20220720
  Serious: No
  Sender: FDA-Public Use
  Company Number: None

PATIENT
  Age: 61 Year
  Sex: Female
  Weight: 58.97 kg

DRUGS (1)
  1. OTEZLA [Suspect]
     Active Substance: APREMILAST
     Indication: Psoriasis
     Dosage: OTHER QUANTITY : TAKE 1 TABLET ;?FREQUENCY : TWICE A DAY;?
     Route: 048
     Dates: start: 202201

REACTIONS (2)
  - Depressed mood [None]
  - Feeling abnormal [None]
